FAERS Safety Report 15865753 (Version 1)
Quarter: 2019Q1

REPORT INFORMATION
  Report Type: Report from Study
  Country: DE (occurrence: DE)
  Receive Date: 20190125
  Receipt Date: 20190125
  Transmission Date: 20190417
  Serious: Yes (Hospitalization, Other)
  Sender: FDA-Public Use
  Company Number: DE-TEVA-2019-DE-1001854

PATIENT
  Age: 77 Year
  Sex: Male
  Weight: 91 kg

DRUGS (18)
  1. 5-FU [Suspect]
     Active Substance: FLUOROURACIL
     Route: 042
     Dates: start: 20140122
  2. IRINOTECAN [Suspect]
     Active Substance: IRINOTECAN
     Route: 042
     Dates: start: 20140319
  3. BEVACIZUMAB. [Suspect]
     Active Substance: BEVACIZUMAB
     Dosage: 5 MG/KG
     Route: 042
  4. ALLOPURINOL. [Concomitant]
     Active Substance: ALLOPURINOL
     Dosage: 100 MG
     Route: 048
     Dates: start: 20140306
  5. L-THYROXIN [Concomitant]
     Active Substance: LEVOTHYROXINE SODIUM
     Indication: HYPOTHYROIDISM
     Dosage: 150 MICROGRAM DAILY; DAILY DOSE: 150 ?G MICROGRAM(S) EVERY DAY
     Route: 048
     Dates: start: 20131104
  6. MARCUMAR [Concomitant]
     Active Substance: PHENPROCOUMON
     Indication: ATRIAL FIBRILLATION
     Dosage: ACCORDING TO INR
     Route: 048
     Dates: start: 20131104
  7. MIFLONIDE [Concomitant]
     Active Substance: BUDESONIDE
     Indication: CHRONIC OBSTRUCTIVE PULMONARY DISEASE
     Dosage: .8 MILLIGRAM DAILY;
     Route: 055
     Dates: start: 20131104
  8. PHENPROCOUMON [Suspect]
     Active Substance: PHENPROCOUMON
     Indication: PRODUCT USED FOR UNKNOWN INDICATION
     Route: 065
  9. 5-FU [Suspect]
     Active Substance: FLUOROURACIL
     Indication: COLORECTAL CANCER METASTATIC
     Dosage: DAILY DOSE: 2400 MG/M2 MILLIGRAM(S)/SQ. METER EVERY 14 DAY
     Route: 042
     Dates: start: 20140122
  10. IRINOTECAN [Suspect]
     Active Substance: IRINOTECAN
     Indication: COLORECTAL CANCER METASTATIC
     Dosage: DAILY DOSE: 180 MG/M2 MILLIGRAM(S)/SQ. METER EVERY 14 DAY
     Route: 042
     Dates: start: 20140122
  11. BEVACIZUMAB. [Suspect]
     Active Substance: BEVACIZUMAB
     Indication: COLORECTAL CANCER METASTATIC
     Dosage: DAILY DOSE: 5 MG/KG MILLIGRAM(S)/KILOGRAM EVERY 14 DAY
     Route: 042
     Dates: start: 20140122
  12. ISOPTIN [Concomitant]
     Active Substance: VERAPAMIL HYDROCHLORIDE
     Indication: ATRIAL FIBRILLATION
     Dosage: 120 MILLIGRAM DAILY; DAILY DOSE: 240 MG MILLIGRAM(S) EVERY DAY
     Route: 048
     Dates: start: 20131104
  13. SIMVASTATIN. [Concomitant]
     Active Substance: SIMVASTATIN
     Indication: HYPERLIPIDAEMIA
     Dosage: 20 MILLIGRAM DAILY;
     Route: 048
     Dates: start: 20131104
  14. DIOVAN [Concomitant]
     Active Substance: VALSARTAN
     Indication: CARDIAC FAILURE CHRONIC
     Dosage: 80 MILLIGRAM DAILY; DAILY DOSE: 160 MG MILLIGRAM(S) EVERY DAY
     Route: 048
     Dates: start: 20131104
  15. IRINOTECAN [Suspect]
     Active Substance: IRINOTECAN
     Indication: PRODUCT USED FOR UNKNOWN INDICATION
     Route: 065
  16. SPIRIVA [Concomitant]
     Active Substance: TIOTROPIUM BROMIDE MONOHYDRATE
     Indication: CHRONIC OBSTRUCTIVE PULMONARY DISEASE
     Dosage: 18 MILLIGRAM DAILY;
     Route: 055
     Dates: start: 20131104
  17. ALLOPURINOL. [Concomitant]
     Active Substance: ALLOPURINOL
     Indication: HYPERURICAEMIA
     Dosage: 150 MILLIGRAM DAILY;
     Route: 048
     Dates: start: 20131104
  18. TORASEMID [Concomitant]
     Active Substance: TORSEMIDE
     Indication: RENAL FAILURE
     Dosage: 10 MILLIGRAM DAILY;
     Route: 048
     Dates: start: 20131104

REACTIONS (7)
  - Hypotension [Not Recovered/Not Resolved]
  - Prerenal failure [Not Recovered/Not Resolved]
  - Acute kidney injury [Unknown]
  - Pneumonia [Recovered/Resolved]
  - Enteritis infectious [Unknown]
  - Dehydration [Not Recovered/Not Resolved]
  - Overdose [Unknown]

NARRATIVE: CASE EVENT DATE: 20140205
